FAERS Safety Report 21602133 (Version 1)
Quarter: 2022Q4

REPORT INFORMATION
  Report Type: Spontaneous
  Country: CA (occurrence: CA)
  Receive Date: 20221116
  Receipt Date: 20221116
  Transmission Date: 20230113
  Serious: Yes (Hospitalization)
  Sender: FDA-Public Use
  Company Number: None

PATIENT
  Age: 76 Year
  Sex: Male
  Weight: 67 kg

DRUGS (15)
  1. FLUOROURACIL [Suspect]
     Active Substance: FLUOROURACIL
     Indication: Oesophageal carcinoma
     Dosage: DOSAGE FORM: SOLUTION INTRAVENOUS, INTRAVENOUS DRIP
     Route: 042
  2. ASPIRIN [Concomitant]
     Active Substance: ASPIRIN
     Route: 065
  3. ATORVASTATIN [Concomitant]
     Active Substance: ATORVASTATIN
     Route: 065
  4. BISOPROLOL [Concomitant]
     Active Substance: BISOPROLOL
     Route: 065
  5. CLOPIDOGREL [Concomitant]
     Active Substance: CLOPIDOGREL BISULFATE
  6. FINASTERIDE [Concomitant]
     Active Substance: FINASTERIDE
  7. FLUTICASONE [Concomitant]
     Active Substance: FLUTICASONE
  8. FRAGMIN [Concomitant]
     Active Substance: DALTEPARIN SODIUM
     Dosage: DOSAGE FORM: SOLUTION INTRAVENOUS
  9. LISINOPRIL [Concomitant]
     Active Substance: LISINOPRIL
  10. LORAZEPAM [Concomitant]
     Active Substance: LORAZEPAM
     Route: 065
  11. METFORMIN [Concomitant]
     Active Substance: METFORMIN HYDROCHLORIDE
  12. NITROGLYCERIN [Concomitant]
     Active Substance: NITROGLYCERIN
     Dosage: DOSAGE FORM: SPRAY(NOT INHALATION)
  13. PREDNISONE [Concomitant]
     Active Substance: PREDNISONE
  14. TAMSULOSIN [Concomitant]
     Active Substance: TAMSULOSIN
  15. GLYCOPYRROLATE\INDACATEROL MALEATE [Concomitant]
     Active Substance: GLYCOPYRROLATE\INDACATEROL MALEATE

REACTIONS (1)
  - Arteriospasm coronary [Recovered/Resolved]
